FAERS Safety Report 6329092-X (Version None)
Quarter: 2009Q3

REPORT INFORMATION
  Report Type: 
  Country: None (occurrence: None)
  Receive Date: 20090826
  Receipt Date: 20090817
  Transmission Date: 20100115
  Serious: Yes (Other)
  Sender: FDA-Public Use
  Company Number: AU-ROCHE-650483

PATIENT

DRUGS (4)
  1. OSELTAMIVIR [Suspect]
     Indication: DRUG USE FOR UNKNOWN INDICATION
  2. FLOXACILLIN SODIUM [Suspect]
     Indication: DRUG USE FOR UNKNOWN INDICATION
  3. TICARCILLIN + CLAVULANIC ACID [Suspect]
     Indication: DRUG USE FOR UNKNOWN INDICATION
  4. VANCOMYCIN HYDROCHLORIDE [Suspect]
     Indication: DRUG USE FOR UNKNOWN INDICATION
     Dosage: ROUTE REPORTED AS INTRAVENOUS INFUSION

REACTIONS (1)
  - ASCITES [None]
